FAERS Safety Report 7575485-2 (Version None)
Quarter: 2011Q2

REPORT INFORMATION
  Report Type: 
  Country: None (occurrence: None)
  Receive Date: 20110627
  Receipt Date: 20110616
  Transmission Date: 20111010
  Serious: Yes (Disabling)
  Sender: FDA-Public Use
  Company Number: PHHY2011GB53003

PATIENT
  Age: 75 Year
  Sex: Male
  Weight: 72 kg

DRUGS (5)
  1. FLUOROURACIL [Suspect]
  2. DEXAMETHASONE [Concomitant]
  3. ONDANSETRON [Concomitant]
  4. ASPIRIN [Concomitant]
  5. IRINOTECAN HYDROCHLORIDE [Suspect]
     Dosage: 260 MG, UNK
     Route: 042
     Dates: start: 20100120, end: 20110511

REACTIONS (1)
  - PULMONARY FIBROSIS [None]
